FAERS Safety Report 7784904-8 (Version None)
Quarter: 2011Q3

REPORT INFORMATION
  Report Type: 
  Country: None (occurrence: None)
  Receive Date: 20110928
  Receipt Date: 20110916
  Transmission Date: 20111222
  Serious: Yes (Hospitalization, Other)
  Sender: FDA-Public Use
  Company Number: US-BAYER-2011-023685

PATIENT
  Age: 27 Year
  Sex: Female
  Weight: 45.351 kg

DRUGS (4)
  1. YAZ [Suspect]
     Indication: PREMENSTRUAL SYNDROME
  2. YAZ [Suspect]
     Indication: ACNE
     Dosage: UNK
     Route: 048
     Dates: start: 20070101, end: 20080401
  3. SINGULAIR [Concomitant]
     Dosage: UNK
     Dates: start: 20080422
  4. MUCINEX [Concomitant]
     Dosage: UNK
     Dates: start: 20080422

REACTIONS (7)
  - PAIN [None]
  - MENTAL DISORDER [None]
  - ANXIETY [None]
  - GALLBLADDER DISORDER [None]
  - INJURY [None]
  - PULMONARY EMBOLISM [None]
  - PARANOIA [None]
